FAERS Safety Report 8462350-1 (Version None)
Quarter: 2012Q2

REPORT INFORMATION
  Report Type: 
  Country: None (occurrence: None)
  Receive Date: 20120625
  Receipt Date: 20120618
  Transmission Date: 20120825
  Serious: Yes (Hospitalization, Other)
  Sender: FDA-Public Use
  Company Number: BR-PFIZER INC-2012147056

PATIENT
  Age: 84 Year
  Sex: Female

DRUGS (1)
  1. EFFEXOR XR [Suspect]
     Indication: DEPRESSION
     Dosage: 75 MG (ONE CAPSULE), 1X/DAY
     Route: 048
     Dates: start: 20070101

REACTIONS (2)
  - BEDRIDDEN [None]
  - SPINAL DISORDER [None]
